FAERS Safety Report 4746714-5 (Version None)
Quarter: 2005Q3

REPORT INFORMATION
  Report Type: 
  Country: None (occurrence: None)
  Receive Date: 20050817
  Receipt Date: 20050809
  Transmission Date: 20060218
  Serious: Yes (Death, Hospitalization)
  Sender: FDA-Public Use
  Company Number: A-US2005-08946

PATIENT
  Age: 16 Year
  Sex: Male
  Weight: 66 kg

DRUGS (6)
  1. FLOLAN [Suspect]
     Indication: PULMONARY HYPERTENSION
     Route: 042
     Dates: start: 20040413, end: 20050207
  2. TRACLEER [Suspect]
     Indication: PULMONARY HYPERTENSION
     Dosage: 125MG TWICE PER DAY
     Route: 048
     Dates: start: 20040608, end: 20050207
  3. WARFARIN SODIUM [Suspect]
     Indication: DRUG USE FOR UNKNOWN INDICATION
     Route: 065
     Dates: start: 20040420, end: 20050203
  4. FLOLAN [Suspect]
     Route: 065
  5. NIFEDIPINE [Concomitant]
     Route: 065
  6. DIGOXIN [Concomitant]
     Route: 065

REACTIONS (10)
  - ANXIETY [None]
  - COUGH [None]
  - DYSPNOEA [None]
  - HAEMOPTYSIS [None]
  - OXYGEN SATURATION DECREASED [None]
  - PLATELET FUNCTION TEST ABNORMAL [None]
  - PNEUMONIA [None]
  - PULMONARY HAEMORRHAGE [None]
  - PYREXIA [None]
  - RIGHT VENTRICULAR FAILURE [None]
